FAERS Safety Report 6656937-6 (Version None)
Quarter: 2010Q1

REPORT INFORMATION
  Report Type: 
  Country: None (occurrence: None)
  Receive Date: 20100329
  Receipt Date: 20100329
  Transmission Date: 20100710
  Serious: Yes (Death, Hospitalization)
  Sender: FDA-Public Use
  Company Number: None

PATIENT
  Age: 33 Year
  Sex: Female
  Weight: 72.3 kg

DRUGS (2)
  1. RIFAMPIN [Suspect]
     Indication: TUBERCULOSIS
     Dosage: 600 MG DAILY ORAL 047
     Route: 048
  2. PYRAZINAMIDE [Suspect]
     Indication: TUBERCULOSIS
     Dosage: 1500 MG DAILY ORAL 047
     Route: 048

REACTIONS (8)
  - ABDOMINAL PAIN [None]
  - BRAIN DEATH [None]
  - COAGULOPATHY [None]
  - COMA [None]
  - JAUNDICE [None]
  - MALAISE [None]
  - MENTAL STATUS CHANGES [None]
  - NAUSEA [None]
